FAERS Safety Report 25795834 (Version 2)
Quarter: 2025Q4

REPORT INFORMATION
  Report Type: Spontaneous
  Country: CA (occurrence: CA)
  Receive Date: 20250912
  Receipt Date: 20251112
  Transmission Date: 20260118
  Serious: Yes (Other)
  Sender: CSL BEHRING
  Company Number: CA-BEH-2025218089

PATIENT
  Age: 77 Year
  Sex: Female

DRUGS (1)
  1. ALBUMIN HUMAN [Suspect]
     Active Substance: ALBUMIN HUMAN
     Dosage: 100ML (4/4)
     Route: 065
     Dates: start: 20250826, end: 20250826

REACTIONS (1)
  - Transfusion-associated dyspnoea [Recovered/Resolved]

NARRATIVE: CASE EVENT DATE: 20250826
